FAERS Safety Report 17045710 (Version 1)
Quarter: 2019Q4

REPORT INFORMATION
  Report Type: Spontaneous
  Country: CN (occurrence: CN)
  Receive Date: 20191118
  Receipt Date: 20191118
  Transmission Date: 20200122
  Serious: Yes (Hospitalization, Other)
  Sender: FDA-Public Use
  Company Number: CN-BAXTER-2019BAX022953

PATIENT
  Age: 49 Year
  Sex: Female
  Weight: 53.5 kg

DRUGS (8)
  1. DOXORUBICIN HYDROCHLORIDE. [Suspect]
     Active Substance: DOXORUBICIN HYDROCHLORIDE
     Indication: BREAST CANCER
     Dosage: AC CHEMOTHERAPY, 1ST CYCLE; DOXORUBICIN HYDROCHLORIDE + STERILE WATER FOR INJECTION
     Route: 041
  2. 0.9% SODIUM CHLORIDE INJECTION [Suspect]
     Active Substance: SODIUM CHLORIDE
     Indication: MEDICATION DILUTION
     Dosage: AC CHEMOTHERAPY, 1ST CYCLE; ENDOXAN + SODIUM CHLORIDE
     Route: 041
  3. DOXORUBICIN HYDROCHLORIDE. [Suspect]
     Active Substance: DOXORUBICIN HYDROCHLORIDE
     Dosage: AC CHEMOTHERAPY, 2ND CYCLE; DOXORUBICIN HYDROCHLORIDE 94 MG + STERILE WATER FOR INJECTION OF 500 ML
     Route: 041
     Dates: start: 20191030, end: 20191030
  4. ENDOXAN [Suspect]
     Active Substance: CYCLOPHOSPHAMIDE
     Indication: BREAST CANCER
     Dosage: AC CHEMOTHERAPY, 1ST CYCLE; ENDOXAN + SODIUM CHLORIDE
     Route: 041
  5. ENDOXAN [Suspect]
     Active Substance: CYCLOPHOSPHAMIDE
     Dosage: AC CHEMOTHERAPY, 2ND CYCLE; ENDOXAN 0.94 G + SODIUM CHLORIDE OF 100 ML
     Route: 041
     Dates: start: 20191030, end: 20191030
  6. STERILE WATER [Suspect]
     Active Substance: WATER
     Indication: MEDICATION DILUTION
     Dosage: AC CHEMOTHERAPY, 1ST CYCLE; DOXORUBICIN HYDROCHLORIDE + STERILE WATER FOR INJECTION
     Route: 041
  7. STERILE WATER [Suspect]
     Active Substance: WATER
     Dosage: AC CHEMOTHERAPY, 2ND CYCLE; DOXORUBICIN HYDROCHLORIDE 94 MG + STERILE WATER 500 ML
     Route: 041
     Dates: start: 20191030, end: 20191030
  8. 0.9% SODIUM CHLORIDE INJECTION [Suspect]
     Active Substance: SODIUM CHLORIDE
     Dosage: AC CHEMOTHERAPY, 2ND CYCLE; ENDOXAN 0.94G + SODIUM CHLORIDE OF 100 ML
     Route: 041
     Dates: start: 20191030, end: 20191030

REACTIONS (2)
  - Haematuria [Recovering/Resolving]
  - Abdominal pain [Recovering/Resolving]

NARRATIVE: CASE EVENT DATE: 20191102
